FAERS Safety Report 10268561 (Version 3)
Quarter: 2014Q3

REPORT INFORMATION
  Report Type: Spontaneous
  Country: BR (occurrence: BR)
  Receive Date: 20140630
  Receipt Date: 20140814
  Transmission Date: 20150326
  Serious: Yes (Hospitalization)
  Sender: FDA-Public Use
  Company Number: BR-PFIZER INC-2014176286

PATIENT
  Age: 73 Year
  Sex: Female
  Weight: 64 kg

DRUGS (13)
  1. NAPRIX D [Concomitant]
     Indication: HYPERTENSION
     Dosage: 1 TABLET OF 5MG IN THE MORNING AND 12.5MG AT NIGHT
  2. FRONTAL [Suspect]
     Active Substance: ALPRAZOLAM
     Indication: DEPRESSION
     Dosage: 0.5 MG, DAILY
     Route: 048
     Dates: start: 2006
  3. GLICOLIVE [Concomitant]
     Indication: RHEUMATIC DISORDER
     Dosage: 1 ENVELOPE, DAILY
  4. AAS INFANTIL [Concomitant]
     Active Substance: ASPIRIN
     Indication: HYPERTENSION
     Dosage: 1 TABLET, DAILY
     Dates: start: 2008
  5. METHOTREXATE [Concomitant]
     Active Substance: METHOTREXATE
     Indication: RHEUMATIC DISORDER
     Dosage: 3 TABLETS IN DAYS 10, 20 AND 30
     Dates: start: 2010
  6. METICORTEN [Concomitant]
     Active Substance: PREDNISONE
     Indication: RHEUMATIC DISORDER
     Dosage: 1 TABLET IN PAIRED DAYS
  7. CLINFAR [Concomitant]
     Active Substance: SIMVASTATIN
     Indication: CARDIAC DISORDER
     Dosage: 1 TABLET, DAILY
  8. PAROXETINE [Concomitant]
     Active Substance: PAROXETINE\PAROXETINE HYDROCHLORIDE
     Dosage: 1 TABLET, DAILY
     Dates: start: 2008
  9. REUQUINOL [Concomitant]
     Active Substance: HYDROXYCHLOROQUINE SULFATE
     Indication: RHEUMATIC DISORDER
     Dosage: 2 TABLET, WEEKLY
  10. FRONTAL [Suspect]
     Active Substance: ALPRAZOLAM
     Indication: ANXIETY
  11. CARDIZEM [Concomitant]
     Active Substance: DILTIAZEM HYDROCHLORIDE
     Indication: CARDIAC DISORDER
     Dosage: 1 TABLET, 2X/DAY
     Dates: start: 2011
  12. ENDOFOLIN [Concomitant]
     Active Substance: FOLIC ACID
     Indication: RHEUMATIC DISORDER
     Dosage: 2 TABLETS
  13. EUTHYROX [Concomitant]
     Active Substance: LEVOTHYROXINE SODIUM
     Indication: THYROID DISORDER
     Dosage: 1 TABLET, DAILY

REACTIONS (3)
  - Arthropathy [Unknown]
  - Cardiac disorder [Unknown]
  - Memory impairment [Unknown]

NARRATIVE: CASE EVENT DATE: 2008
